FAERS Safety Report 7532484-4 (Version None)
Quarter: 2011Q2

REPORT INFORMATION
  Report Type: 
  Country: None (occurrence: None)
  Receive Date: 20110608
  Receipt Date: 20110526
  Transmission Date: 20111010
  Serious: Yes (Other)
  Sender: FDA-Public Use
  Company Number: PHHY2011NL47149

PATIENT
  Sex: Male

DRUGS (2)
  1. ZOMETA [Suspect]
     Indication: PROSTATE CANCER
     Dosage: UNK
     Route: 042
     Dates: start: 20101201, end: 20110503
  2. SODIUM CHLORIDE [Suspect]

REACTIONS (1)
  - TERMINAL STATE [None]
